FAERS Safety Report 25086101 (Version 2)
Quarter: 2025Q1

REPORT INFORMATION
  Report Type: Spontaneous
  Country: US (occurrence: US)
  Receive Date: 20250317
  Receipt Date: 20250324
  Transmission Date: 20250408
  Serious: No
  Sender: ABBVIE
  Company Number: US-ABBVIE-6173399

PATIENT
  Sex: Male

DRUGS (1)
  1. SKYRIZI [Suspect]
     Active Substance: RISANKIZUMAB-RZAA
     Indication: Crohn^s disease
     Route: 042

REACTIONS (5)
  - Injection site discomfort [Unknown]
  - Injection site papule [Unknown]
  - Injection site nodule [Unknown]
  - Injection site reaction [Unknown]
  - Injection site pruritus [Unknown]
